FAERS Safety Report 20889335 (Version 1)
Quarter: 2022Q2

REPORT INFORMATION
  Report Type: Other
  Country: CZ (occurrence: None)
  Receive Date: 20220530
  Receipt Date: 20220530
  Transmission Date: 20220721
  Serious: Yes (Other)
  Sender: FDA-Public Use
  Company Number: CZ-ROCHE-3104427

PATIENT
  Age: 63 Year
  Sex: Female

DRUGS (2)
  1. ALECENSA [Suspect]
     Active Substance: ALECTINIB HYDROCHLORIDE
     Indication: Non-small cell lung cancer
     Route: 065
     Dates: end: 20200904
  2. LORLATINIB [Concomitant]
     Active Substance: LORLATINIB
     Indication: Non-small cell lung cancer

REACTIONS (2)
  - Disease progression [Unknown]
  - Drug ineffective [Unknown]
